FAERS Safety Report 18695971 (Version 1)
Quarter: 2021Q1

REPORT INFORMATION
  Report Type: Spontaneous
  Country: CN (occurrence: CN)
  Receive Date: 20210104
  Receipt Date: 20210104
  Transmission Date: 20210419
  Serious: Yes (Other)
  Sender: FDA-Public Use
  Company Number: CN-LUPIN PHARMACEUTICALS INC.-2020-09092

PATIENT
  Age: 7 Month
  Sex: Male

DRUGS (6)
  1. METHYLPREDNISOLONE. [Concomitant]
     Active Substance: METHYLPREDNISOLONE
     Indication: IMMUNOSUPPRESSANT DRUG THERAPY
     Dosage: UNK
     Route: 065
  2. LINEZOLID. [Suspect]
     Active Substance: LINEZOLID
     Indication: ACINETOBACTER INFECTION
     Dosage: UNK
     Route: 042
     Dates: start: 20161214, end: 20161218
  3. LINEZOLID. [Suspect]
     Active Substance: LINEZOLID
     Indication: ENTEROCOCCAL INFECTION
     Dosage: 80 MILLIGRAM, TID
     Route: 065
     Dates: start: 20161201
  4. MEROPENEM. [Concomitant]
     Active Substance: MEROPENEM
     Indication: ACINETOBACTER INFECTION
  5. MEROPENEM. [Concomitant]
     Active Substance: MEROPENEM
     Indication: ENTEROCOCCAL INFECTION
     Dosage: UNK
     Route: 042
     Dates: start: 20161214
  6. TACROLIMUS. [Concomitant]
     Active Substance: TACROLIMUS
     Indication: IMMUNOSUPPRESSANT DRUG THERAPY
     Dosage: UNK
     Route: 065

REACTIONS (1)
  - Thrombocytopenia [Recovered/Resolved]

NARRATIVE: CASE EVENT DATE: 201612
